FAERS Safety Report 15607480 (Version 2)
Quarter: 2018Q4

REPORT INFORMATION
  Report Type: Other
  Country: GB (occurrence: IT)
  Receive Date: 20181112
  Receipt Date: 20181121
  Transmission Date: 20190205
  Serious: Yes (Hospitalization, Other)
  Sender: FDA-Public Use
  Company Number: GB-DIMETHAID UK LIMITED-DIM-002749-2018

PATIENT
  Age: 55 Year
  Sex: Female

DRUGS (1)
  1. DICLOFENAC SODIUM. [Suspect]
     Active Substance: DICLOFENAC SODIUM
     Indication: BACK PAIN
     Dosage: 150 MG, UNK
     Route: 065

REACTIONS (8)
  - Erythema [Recovered/Resolved]
  - Documented hypersensitivity to administered product [Unknown]
  - Product administered at inappropriate site [Unknown]
  - Dyspnoea [Recovered/Resolved]
  - Contraindicated product administered [Unknown]
  - Product use in unapproved indication [Unknown]
  - Angioedema [Recovered/Resolved]
  - Urticaria [Recovered/Resolved]
